FAERS Safety Report 8532429 (Version 4)
Quarter: 2014Q2

REPORT INFORMATION
  Report Type: Spontaneous
  Country: CA (occurrence: CA)
  Receive Date: 20120426
  Receipt Date: 20140527
  Transmission Date: 20141212
  Serious: Yes (Hospitalization)
  Sender: FDA-Public Use
  Company Number: CA-GLAXOSMITHKLINE-A0926669A

PATIENT
  Sex: Male
  Weight: 86.4 kg

DRUGS (13)
  1. FLOVENT [Suspect]
     Indication: PRODUCT USED FOR UNKNOWN INDICATION
     Route: 065
     Dates: end: 2009
  2. ADVAIR DISKUS [Suspect]
     Indication: ASTHMA
     Dosage: 1PUFF TWICE PER DAY
     Route: 055
     Dates: start: 20091021
  3. ADVAIR HFA [Suspect]
     Indication: ASTHMA
     Dosage: 2PUFF PER DAY
     Route: 055
     Dates: start: 2009
  4. RANITIDINE [Concomitant]
     Dosage: 150MG PER DAY
     Route: 065
  5. GABAPENTIN [Concomitant]
     Dosage: 300MG PER DAY
     Route: 065
  6. ATROVENT [Concomitant]
     Dosage: 2PUFF THREE TIMES PER DAY
  7. VENTOLIN [Concomitant]
     Route: 065
  8. ASPIRIN [Concomitant]
     Dosage: 80MG PER DAY
     Route: 065
  9. VASOTEC [Concomitant]
     Dosage: 5MG PER DAY
     Route: 065
  10. ENALAPRIL [Concomitant]
  11. METFORMIN [Concomitant]
  12. CRESTOR [Concomitant]
  13. TYLENOL [Concomitant]
     Route: 065

REACTIONS (13)
  - Diabetic coma [Unknown]
  - Tracheostomy [Unknown]
  - Dysphonia [Not Recovered/Not Resolved]
  - Aphonia [Unknown]
  - Ill-defined disorder [Unknown]
  - Product quality issue [Unknown]
  - Sleep apnoea syndrome [Unknown]
  - Macular degeneration [Recovering/Resolving]
  - Underdose [Unknown]
  - Cardiac arrest [Unknown]
  - Cardiac disorder [Unknown]
  - Productive cough [Unknown]
  - Hip arthroplasty [Unknown]
